FAERS Safety Report 10271440 (Version 1)
Quarter: 2014Q1

REPORT INFORMATION
  Report Type: Spontaneous
  Country: US (occurrence: None)
  Receive Date: 20140306
  Receipt Date: 20140306
  Transmission Date: 20141002
  Serious: Yes (Other)
  Sender: FDA-Public Use
  Company Number: 163-21880-13081774

PATIENT
  Age: 73 Year
  Sex: Male
  Weight: 77.1 kg

DRUGS (9)
  1. REVLIMID (LENALIDOMIDE) (10 MILLIGRAM, CAPSULES) [Suspect]
     Indication: PLASMA CELL MYELOMA
     Route: 048
     Dates: start: 201103
  2. GABAPENTIN (GABAPENTIN) [Concomitant]
  3. VICODIN (VICODIN) [Concomitant]
  4. BENICAR (OLMESARTAN MEDOXOMIL) [Concomitant]
  5. ARICEPT (DONEPEZIL HYDROCHLORIDE) [Concomitant]
  6. DEXAMETHASONE (DEXAMETHASONE) [Concomitant]
  7. ASPIRIN (ACETYLSALICYLIC ACID) (ENTERIC-COATED TABLET) [Concomitant]
  8. LOVASTATIN (LOVASTATIN) [Concomitant]
  9. OMEPRAZOLE (OMEPRAZOLE) [Concomitant]

REACTIONS (2)
  - Thrombosis [None]
  - Drug dose omission [None]
